FAERS Safety Report 24217466 (Version 3)
Quarter: 2025Q2

REPORT INFORMATION
  Report Type: Spontaneous
  Country: US (occurrence: US)
  Receive Date: 20240816
  Receipt Date: 20250515
  Transmission Date: 20250717
  Serious: Yes (Hospitalization, Other)
  Sender: SANOFI AVENTIS
  Company Number: US-SA-SAC20240812001021

PATIENT
  Age: 58 Year
  Sex: Female
  Weight: 50.8 kg

DRUGS (22)
  1. REZUROCK [Suspect]
     Active Substance: BELUMOSUDIL
     Indication: Graft versus host disease
     Dosage: 200 MG, QD
     Route: 048
     Dates: start: 20220212
  2. CELEBREX [Concomitant]
     Active Substance: CELECOXIB
  3. AMOXICILLIN [Concomitant]
     Active Substance: AMOXICILLIN
  4. ACYCLOVIR [Concomitant]
     Active Substance: ACYCLOVIR
  5. CARVEDILOL [Concomitant]
     Active Substance: CARVEDILOL
  6. ALLEGRA [Concomitant]
     Active Substance: FEXOFENADINE HYDROCHLORIDE
  7. CRESEMBA [Concomitant]
     Active Substance: ISAVUCONAZONIUM SULFATE
  8. DESFERAL [Concomitant]
     Active Substance: DEFEROXAMINE MESYLATE
  9. FAMOTIDINE [Concomitant]
     Active Substance: FAMOTIDINE
  10. FOLIC ACID [Concomitant]
     Active Substance: FOLIC ACID
  11. MAGNESIUM [Concomitant]
     Active Substance: MAGNESIUM
  12. MEPRON [Concomitant]
     Active Substance: ATOVAQUONE
  13. ZOFRAN [Concomitant]
     Active Substance: ONDANSETRON HYDROCHLORIDE
  14. ORENCIA [Concomitant]
     Active Substance: ABATACEPT
  15. PENICILLIN [Concomitant]
     Active Substance: PENICILLIN
  16. PLAQUENIL [Concomitant]
     Active Substance: HYDROXYCHLOROQUINE SULFATE
  17. PROLIA [Concomitant]
     Active Substance: DENOSUMAB
  18. SINGULAIR [Concomitant]
     Active Substance: MONTELUKAST SODIUM
  19. SPIRIVA [Concomitant]
     Active Substance: TIOTROPIUM BROMIDE MONOHYDRATE
  20. TRELEGY ELLIPTA [Concomitant]
     Active Substance: FLUTICASONE FUROATE\UMECLIDINIUM BROMIDE\VILANTEROL TRIFENATATE
  21. VITAMIN D3 [Concomitant]
     Active Substance: CHOLECALCIFEROL
  22. SIROLIMUS [Concomitant]
     Active Substance: SIROLIMUS

REACTIONS (3)
  - Intestinal obstruction [Unknown]
  - Swelling face [Recovering/Resolving]
  - Swelling of eyelid [Not Recovered/Not Resolved]
